FAERS Safety Report 9922548 (Version 1)
Quarter: 2014Q1

REPORT INFORMATION
  Report Type: Spontaneous
  Country: US (occurrence: US)
  Receive Date: 20140225
  Receipt Date: 20140225
  Transmission Date: 20141002
  Serious: No
  Sender: FDA-Public Use
  Company Number: US-ABBVIE-13P-163-1051164-00

PATIENT
  Age: 48 Year
  Sex: Male
  Weight: 102.15 kg

DRUGS (5)
  1. ANDROGEL [Suspect]
     Indication: BLOOD TESTOSTERONE DECREASED
     Route: 061
     Dates: start: 2010, end: 201206
  2. ANDROGEL [Suspect]
     Route: 061
     Dates: start: 201206, end: 201209
  3. ANDRODERM [Suspect]
     Indication: BLOOD TESTOSTERONE DECREASED
  4. HYDROCHLORTHIAZID [Concomitant]
     Indication: HYPERTENSION
  5. AMLODIPINE [Concomitant]
     Indication: HYPERTENSION

REACTIONS (3)
  - Blood testosterone decreased [Unknown]
  - Drug administered at inappropriate site [Unknown]
  - Asthenia [Not Recovered/Not Resolved]
